FAERS Safety Report 6554735-5 (Version None)
Quarter: 2010Q1

REPORT INFORMATION
  Report Type: 
  Country: None (occurrence: None)
  Receive Date: 20100125
  Receipt Date: 20100119
  Transmission Date: 20100710
  Serious: Yes (Death, Hospitalization)
  Sender: FDA-Public Use
  Company Number: 10GB001247

PATIENT
  Age: 36 Year
  Sex: Male

DRUGS (1)
  1. PAROXETINE HCL [Suspect]
     Indication: DEPRESSION
     Dosage: 20 MG
     Dates: start: 20030206, end: 20030213

REACTIONS (2)
  - ASPHYXIA [None]
  - COMPLETED SUICIDE [None]
